FAERS Safety Report 10428043 (Version 2)
Quarter: 2014Q3

REPORT INFORMATION
  Report Type: Spontaneous
  Country: US (occurrence: US)
  Receive Date: 20140903
  Receipt Date: 20140903
  Transmission Date: 20150326
  Serious: No
  Sender: FDA-Public Use
  Company Number: US-ELI_LILLY_AND_COMPANY-US201306000805

PATIENT
  Sex: Female

DRUGS (3)
  1. HUMALOG [Suspect]
     Active Substance: INSULIN LISPRO
     Dosage: 120 U, PRN
  2. HUMALOG [Suspect]
     Active Substance: INSULIN LISPRO
     Indication: DIABETES MELLITUS
     Dosage: 30 U, PRN
  3. LANTUS [Concomitant]
     Active Substance: INSULIN GLARGINE

REACTIONS (12)
  - Dyspepsia [Unknown]
  - Chest discomfort [Unknown]
  - Blood glucose increased [Unknown]
  - Blood glucose decreased [Unknown]
  - Vomiting [Unknown]
  - Stress [Unknown]
  - Drug ineffective [Unknown]
  - Nausea [Unknown]
  - Ear infection [Unknown]
  - Paraesthesia oral [Unknown]
  - Pollakiuria [Unknown]
  - Thirst [Unknown]

NARRATIVE: CASE EVENT DATE: 201305
